FAERS Safety Report 10615968 (Version 1)
Quarter: 2014Q4

REPORT INFORMATION
  Report Type: Spontaneous
  Country: CO (occurrence: CO)
  Receive Date: 20141201
  Receipt Date: 20141201
  Transmission Date: 20150529
  Serious: Yes (Death, Hospitalization)
  Sender: FDA-Public Use
  Company Number: CO-JNJFOC-20141119177

PATIENT
  Age: 71 Year
  Sex: Male
  Weight: 60 kg

DRUGS (1)
  1. REMICADE [Suspect]
     Active Substance: INFLIXIMAB
     Indication: COLITIS ULCERATIVE
     Route: 042
     Dates: start: 20140226, end: 20141016

REACTIONS (3)
  - Cardio-respiratory arrest [Fatal]
  - Gastrointestinal disorder [Unknown]
  - Peritonitis [Fatal]

NARRATIVE: CASE EVENT DATE: 20141016
